FAERS Safety Report 20938480 (Version 1)
Quarter: 2022Q2

REPORT INFORMATION
  Report Type: Spontaneous
  Country: US (occurrence: None)
  Receive Date: 20220608
  Receipt Date: 20220608
  Transmission Date: 20220721
  Serious: Yes (Hospitalization, Disabling)
  Sender: FDA-Public Use
  Company Number: None

PATIENT
  Age: 22 Year
  Sex: Female
  Weight: 109.32 kg

DRUGS (7)
  1. NEXPLANON [Suspect]
     Active Substance: ETONOGESTREL
  2. EFFEXOR [Concomitant]
     Active Substance: VENLAFAXINE HYDROCHLORIDE
  3. Trazadone 150mg [Concomitant]
  4. ADDERALL [Concomitant]
     Active Substance: AMPHETAMINE ASPARTATE\AMPHETAMINE SULFATE\DEXTROAMPHETAMINE SACCHARATE\DEXTROAMPHETAMINE SULFATE
  5. Gabbapentin 300MG [Concomitant]
  6. Prasosin 2MG [Concomitant]
  7. ALBUTEROL [Concomitant]
     Active Substance: ALBUTEROL

REACTIONS (12)
  - Complication associated with device [None]
  - Nausea [None]
  - Headache [None]
  - Fatigue [None]
  - Depression [None]
  - Weight decreased [None]
  - Menstruation irregular [None]
  - Faeces discoloured [None]
  - Insomnia [None]
  - Implant site hypoaesthesia [None]
  - Muscular weakness [None]
  - Decreased appetite [None]

NARRATIVE: CASE EVENT DATE: 20220520
